FAERS Safety Report 6201764-7 (Version None)
Quarter: 2009Q2

REPORT INFORMATION
  Report Type: 
  Country: None (occurrence: None)
  Receive Date: 20090526
  Receipt Date: 20081211
  Transmission Date: 20091009
  Serious: Yes (Other)
  Sender: FDA-Public Use
  Company Number: US-BRISTOL-MYERS SQUIBB COMPANY-14443667

PATIENT
  Sex: Female

DRUGS (2)
  1. ENTECAVIR [Suspect]
  2. ADEFOVIR DIPIVOXIL KIT [Suspect]

REACTIONS (1)
  - DRUG INEFFECTIVE [None]
